FAERS Safety Report 19596469 (Version 2)
Quarter: 2021Q3

REPORT INFORMATION
  Report Type: Spontaneous
  Country: US (occurrence: US)
  Receive Date: 20210722
  Receipt Date: 20210809
  Transmission Date: 20211014
  Serious: Yes (Other)
  Sender: FDA-Public Use
  Company Number: US-BAYER-2021-179758

PATIENT
  Age: 25 Year
  Sex: Male

DRUGS (1)
  1. KOGENATE FS [Suspect]
     Active Substance: ANTIHEMOPHILIC FACTOR, HUMAN RECOMBINANT
     Dosage: 2400 U, 1 DF, ONCE; TO TREAT RIGHT KNEE BLEED
     Route: 042
     Dates: start: 202107

REACTIONS (2)
  - Traumatic haemorrhage [Recovered/Resolved]
  - Accident [Recovered/Resolved]

NARRATIVE: CASE EVENT DATE: 20210716
